FAERS Safety Report 15711302 (Version 2)
Quarter: 2018Q4

REPORT INFORMATION
  Report Type: Report from Study
  Country: US (occurrence: US)
  Receive Date: 20181211
  Receipt Date: 20181219
  Transmission Date: 20190205
  Serious: Yes (Hospitalization, Other)
  Sender: FDA-Public Use
  Company Number: US-GILEAD-2018-0379490

PATIENT
  Age: 78 Year
  Sex: Female

DRUGS (3)
  1. IDELALISIB [Suspect]
     Active Substance: IDELALISIB
     Indication: B-CELL LYMPHOMA
     Dosage: 100 MG, QD
     Route: 065
     Dates: start: 201805
  2. IDELALISIB [Suspect]
     Active Substance: IDELALISIB
     Dosage: 150 MG, BID
     Route: 065
     Dates: start: 20150314, end: 201604
  3. IDELALISIB [Suspect]
     Active Substance: IDELALISIB
     Dosage: 100 MG, QD
     Route: 048
     Dates: start: 20180130, end: 201805

REACTIONS (6)
  - Pneumonia [Not Recovered/Not Resolved]
  - Feeling abnormal [Not Recovered/Not Resolved]
  - B-cell lymphoma recurrent [Unknown]
  - Muscle spasms [Not Recovered/Not Resolved]
  - Nasopharyngitis [Not Recovered/Not Resolved]
  - Fatigue [Unknown]

NARRATIVE: CASE EVENT DATE: 201805
